FAERS Safety Report 18029198 (Version 1)
Quarter: 2020Q3

REPORT INFORMATION
  Report Type: Spontaneous
  Country: CA (occurrence: CA)
  Receive Date: 20200716
  Receipt Date: 20200716
  Transmission Date: 20201103
  Serious: Yes (Other)
  Sender: FDA-Public Use
  Company Number: CA-ACCORD-190160

PATIENT
  Age: 84 Year
  Sex: Female

DRUGS (24)
  1. CANDESARTAN. [Suspect]
     Active Substance: CANDESARTAN
     Indication: HYPERTENSION
     Dosage: FREQUENCY: 1 EVERY 1 DAYS
  2. CITALOPRAM [Suspect]
     Active Substance: CITALOPRAM HYDROBROMIDE
     Indication: DEPRESSED MOOD
     Dosage: FREQUENCY: 1 EVERY 1 DAYS
  3. LEVOTHYROXINE. [Suspect]
     Active Substance: LEVOTHYROXINE
     Indication: HYPOTHYROIDISM
     Dosage: FREQUENCY: 1 EVERY 1 DAYS
  4. METOCLOPRAMIDE. [Suspect]
     Active Substance: METOCLOPRAMIDE
     Indication: DIVERTICULITIS
     Dosage: FREQUENCY: 3 EVERY 1 DAYS
  5. TRAZODONE [Suspect]
     Active Substance: TRAZODONE HYDROCHLORIDE
     Indication: INSOMNIA
     Route: 048
  6. BETAHISTINE [Suspect]
     Active Substance: BETAHISTINE
     Indication: VERTIGO
  7. ROSUVASTATIN. [Suspect]
     Active Substance: ROSUVASTATIN
     Indication: HAEMORRHAGIC STROKE
  8. BISOPROLOL [Suspect]
     Active Substance: BISOPROLOL
     Indication: PRODUCT USED FOR UNKNOWN INDICATION
     Dosage: FREQUENCY: 1 EVERY 1 DAYS
  9. DIMENHYDRINATE. [Suspect]
     Active Substance: DIMENHYDRINATE
     Indication: NAUSEA
  10. ERGOCALCIFEROL. [Suspect]
     Active Substance: ERGOCALCIFEROL
     Indication: OSTEOPOROSIS
     Dosage: FREQUENCY: 1 EVERY 1 DAYS
  11. RISEDRONIC ACID [Suspect]
     Active Substance: RISEDRONIC ACID
     Indication: OSTEOPOROSIS
  12. ROSUVASTATIN. [Suspect]
     Active Substance: ROSUVASTATIN
     Indication: HAEMORRHAGIC STROKE
     Dosage: FREQUENCY: 1 EVERY 1 DAYS
  13. TRAZODONE [Suspect]
     Active Substance: TRAZODONE HYDROCHLORIDE
     Indication: INSOMNIA
     Dosage: FREQUENCY: 1 EVERY 1 DAYS
     Route: 048
  14. MIRTAZAPINE. [Suspect]
     Active Substance: MIRTAZAPINE
     Indication: DEPRESSED MOOD
     Dosage: FREQUENCY: 1 EVERY 1 DAYS
  15. RISEDRONIC ACID [Suspect]
     Active Substance: RISEDRONIC ACID
     Indication: OSTEOPOROSIS
     Dosage: FREQUENCY: 1 EVERY 1 DAYS
  16. TIMOLOL. [Suspect]
     Active Substance: TIMOLOL
     Indication: GLAUCOMA
     Dosage: FREQUENCY: 2 EVERY 1 DAYS
     Route: 047
  17. BETAHISTINE [Suspect]
     Active Substance: BETAHISTINE
     Indication: VERTIGO
     Dosage: FREQUENCY: 3 EVERY 1 DAYS
  18. CARBIDOPA/LEVODOPA [Suspect]
     Active Substance: CARBIDOPA\LEVODOPA
     Indication: PARKINSON^S DISEASE
     Dosage: FREQUENCY: 3 EVERY 1 DAYS
  19. REACTINE (CETIRIZINE) [Suspect]
     Active Substance: CETIRIZINE HYDROCHLORIDE
     Indication: EYE PRURITUS
     Dosage: FREQUENCY: 1 EVERY 1 DAYS
  20. BETAHISTINE [Suspect]
     Active Substance: BETAHISTINE
     Indication: VERTIGO
     Dosage: FREQUENCY: 1 EVERY 1 DAYS
  21. TRAZODONE [Suspect]
     Active Substance: TRAZODONE HYDROCHLORIDE
     Indication: INSOMNIA
     Route: 048
  22. PANTOPRAZOLE [Suspect]
     Active Substance: PANTOPRAZOLE
     Indication: NAUSEA
     Dosage: FREQUENCY: 1 EVERY 1 DAYS
     Route: 048
  23. BETAHISTINE [Suspect]
     Active Substance: BETAHISTINE
     Indication: VERTIGO
     Dosage: FREQUENCY: 2 EVERY 1 DAYS
  24. BETAHISTINE [Suspect]
     Active Substance: BETAHISTINE
     Indication: VERTIGO

REACTIONS (20)
  - Nausea [Not Recovered/Not Resolved]
  - Vertigo [Not Recovered/Not Resolved]
  - Decreased appetite [Not Recovered/Not Resolved]
  - Dizziness [Not Recovered/Not Resolved]
  - Abdominal distension [Not Recovered/Not Resolved]
  - Vitamin B12 decreased [Not Recovered/Not Resolved]
  - Constipation [Not Recovered/Not Resolved]
  - Fall [Unknown]
  - Hypersensitivity [Not Recovered/Not Resolved]
  - Depressed mood [Not Recovered/Not Resolved]
  - Eye pruritus [Not Recovered/Not Resolved]
  - Hypotension [Not Recovered/Not Resolved]
  - Lacrimation increased [Not Recovered/Not Resolved]
  - Vomiting [Not Recovered/Not Resolved]
  - Condition aggravated [Not Recovered/Not Resolved]
  - Drug ineffective [Unknown]
  - Dry mouth [Not Recovered/Not Resolved]
  - Fatigue [Not Recovered/Not Resolved]
  - Parkinson^s disease [Not Recovered/Not Resolved]
  - Loss of personal independence in daily activities [Not Recovered/Not Resolved]
